FAERS Safety Report 5023435-5 (Version None)
Quarter: 2006Q2

REPORT INFORMATION
  Report Type: 
  Country: None (occurrence: None)
  Receive Date: 20060606
  Receipt Date: 20060530
  Transmission Date: 20061013
  Serious: Yes (Other)
  Sender: FDA-Public Use
  Company Number: 2006059314

PATIENT
  Sex: Female

DRUGS (1)
  1. RHINOPRONT KOMBI (PSEUDOEPHEDRINE, TRIPROLIDINE) [Suspect]
     Indication: RHINITIS
     Dosage: 1 TABLET DAILY, ORAL
     Route: 048
     Dates: start: 20060401, end: 20060101

REACTIONS (1)
  - URTICARIA [None]
